FAERS Safety Report 5350713-2 (Version None)
Quarter: 2007Q2

REPORT INFORMATION
  Report Type: 
  Country: None (occurrence: None)
  Receive Date: 20070606
  Receipt Date: 20070606
  Transmission Date: 20071010
  Serious: Yes (Hospitalization)
  Sender: FDA-Public Use
  Company Number: None

PATIENT
  Sex: Female
  Weight: 99.7913 kg

DRUGS (6)
  1. VELCADE [Suspect]
     Indication: LUNG NEOPLASM MALIGNANT
     Dosage: 1.7 MG 2 X WEEK IV
     Route: 042
     Dates: start: 20070220, end: 20070316
  2. ADVAIR DISCKUS [Concomitant]
  3. PREDNISONE TAB [Concomitant]
  4. HYCODAN [Concomitant]
  5. ZOFRAN [Concomitant]
  6. ALBUTEROL [Concomitant]

REACTIONS (2)
  - OBSTRUCTIVE AIRWAYS DISORDER [None]
  - PLATELET COUNT DECREASED [None]
